FAERS Safety Report 16450233 (Version 8)
Quarter: 2020Q2

REPORT INFORMATION
  Report Type: Spontaneous
  Country: BR (occurrence: BR)
  Receive Date: 20190619
  Receipt Date: 20200626
  Transmission Date: 20200713
  Serious: Yes (Hospitalization, Other)
  Sender: FDA-Public Use
  Company Number: BR-GLAXOSMITHKLINE-BR2019GSK107672

PATIENT
  Sex: Female
  Weight: 71 kg

DRUGS (1)
  1. NUCALA [Suspect]
     Active Substance: MEPOLIZUMAB
     Indication: ASTHMA
     Dosage: 100 MG, Z MONTHLY
     Route: 042
     Dates: start: 20181222

REACTIONS (19)
  - Colitis [Unknown]
  - Asthenia [Unknown]
  - Epistaxis [Unknown]
  - Malaise [Unknown]
  - Pneumonia [Unknown]
  - Dysphonia [Unknown]
  - Therapeutic response unexpected [Unknown]
  - Asthma [Unknown]
  - Inappropriate schedule of product administration [Unknown]
  - Asthmatic crisis [Unknown]
  - COVID-19 [Recovering/Resolving]
  - Vasculitis [Unknown]
  - Product dose omission [Unknown]
  - Dyspnoea [Unknown]
  - Fatigue [Unknown]
  - Pulmonary function test abnormal [Unknown]
  - Cough [Unknown]
  - Visual impairment [Unknown]
  - Product availability issue [Unknown]
